FAERS Safety Report 24798817 (Version 1)
Quarter: 2025Q1

REPORT INFORMATION
  Report Type: Spontaneous
  Country: PL (occurrence: PL)
  Receive Date: 20250102
  Receipt Date: 20250102
  Transmission Date: 20250409
  Serious: Yes (Other)
  Sender: NOVO NORDISK
  Company Number: PL-NOVOPROD-1278441

PATIENT
  Age: 31 Year
  Sex: Female
  Weight: 61.3 kg

DRUGS (1)
  1. FIASP [Suspect]
     Active Substance: INSULIN ASPART
     Indication: Blood glucose abnormal
     Route: 058
     Dates: start: 20240711

REACTIONS (6)
  - Amniocentesis abnormal [Unknown]
  - Maternal exposure during pregnancy [Recovered/Resolved]
  - Liquid product physical issue [Unknown]
  - Liquid product physical issue [Unknown]
  - Liquid product physical issue [Unknown]
  - Product leakage [Unknown]

NARRATIVE: CASE EVENT DATE: 20240711
